FAERS Safety Report 20262550 (Version 1)
Quarter: 2021Q4

REPORT INFORMATION
  Report Type: Spontaneous
  Country: MD (occurrence: MD)
  Receive Date: 20211231
  Receipt Date: 20211231
  Transmission Date: 20220303
  Serious: No
  Sender: FDA-Public Use
  Company Number: MD-LUPIN PHARMACEUTICALS INC.-2021-25733

PATIENT
  Sex: Male

DRUGS (1)
  1. CEFTRIAXONE [Suspect]
     Active Substance: CEFTRIAXONE
     Indication: Respiratory tract infection
     Dosage: UNK
     Route: 065

REACTIONS (1)
  - Rash [Unknown]
